FAERS Safety Report 18485142 (Version 4)
Quarter: 2021Q1

REPORT INFORMATION
  Report Type: Spontaneous
  Country: US (occurrence: US)
  Receive Date: 20201110
  Receipt Date: 20210121
  Transmission Date: 20210419
  Serious: Yes (Other)
  Sender: FDA-Public Use
  Company Number: US-PFIZER INC-2020426036

PATIENT
  Age: 62 Year
  Sex: Female

DRUGS (2)
  1. PREMARIN [Suspect]
     Active Substance: ESTROGENS, CONJUGATED
     Indication: ATROPHIC VULVOVAGINITIS
     Dosage: 0.5 G (THEN ADJUST ONE TO THREE TIMES A WEEK TO MAINTAIN.)
     Route: 067
  2. PREMARIN [Suspect]
     Active Substance: ESTROGENS, CONJUGATED
     Indication: VULVOVAGINAL DRYNESS
     Dosage: 0.5 G, DAILY (HALF GRAM INTO VAGINA DAILY FOR TWO WEEKS)
     Route: 067
     Dates: start: 202009

REACTIONS (2)
  - Off label use [Unknown]
  - Vulvovaginal injury [Unknown]
